FAERS Safety Report 7338151-4 (Version None)
Quarter: 2011Q1

REPORT INFORMATION
  Report Type: 
  Country: None (occurrence: None)
  Receive Date: 20110308
  Receipt Date: 20110223
  Transmission Date: 20110831
  Serious: Yes (Hospitalization)
  Sender: FDA-Public Use
  Company Number: FR-ELI_LILLY_AND_COMPANY-FR201103000956

PATIENT
  Age: 51 Year
  Sex: Male

DRUGS (4)
  1. CYMBALTA [Suspect]
     Dosage: 60 MG, DAILY (1/D)
     Route: 048
     Dates: start: 20090608, end: 20090609
  2. HYDROXYZINE [Concomitant]
     Dosage: 75 MG, DAILY (1/D)
     Dates: start: 20090608, end: 20090611
  3. TRIMEPRAZINE TARTRATE [Concomitant]
     Dosage: 40 GTT, DAILY (1/D)
     Dates: start: 20090608, end: 20090609
  4. TERCIAN [Concomitant]
     Dosage: 80 MG, DAILY (1/D)
     Route: 048
     Dates: start: 20090608, end: 20090609

REACTIONS (1)
  - PRIAPISM [None]
